FAERS Safety Report 5162014-6 (Version None)
Quarter: 2006Q4

REPORT INFORMATION
  Report Type: 
  Country: None (occurrence: None)
  Receive Date: 20061121
  Receipt Date: 20061114
  Transmission Date: 20070319
  Serious: Yes (Other)
  Sender: FDA-Public Use
  Company Number: 2006SP006271

PATIENT
  Age: 50 Year
  Sex: Female

DRUGS (2)
  1. RIBAVIRIN [Suspect]
     Indication: HEPATITIS C
     Dosage: PO
     Route: 048
  2. PEG-INTRON [Suspect]
     Indication: HEPATITIS C

REACTIONS (1)
  - BLOOD BLISTER [None]
